FAERS Safety Report 16410700 (Version 1)
Quarter: 2019Q2

REPORT INFORMATION
  Report Type: Report from Study
  Country: FR (occurrence: FR)
  Receive Date: 20190610
  Receipt Date: 20190610
  Transmission Date: 20190711
  Serious: Yes (Other)
  Sender: FDA-Public Use
  Company Number: FR-JAZZ-JPI-P-003411

PATIENT

DRUGS (31)
  1. SEROPLEX [Concomitant]
     Active Substance: ESCITALOPRAM OXALATE
     Indication: PRODUCT USED FOR UNKNOWN INDICATION
     Dosage: 10 MG, QD
  2. XYREM [Suspect]
     Active Substance: SODIUM OXYBATE
     Indication: NARCOLEPSY
     Dosage: 2.25 G, BID
     Route: 048
     Dates: start: 20080223, end: 20080522
  3. XYREM [Suspect]
     Active Substance: SODIUM OXYBATE
     Indication: CATAPLEXY
     Dosage: 4.5 G, QD
     Route: 048
     Dates: start: 20080523, end: 20081028
  4. XYREM [Suspect]
     Active Substance: SODIUM OXYBATE
     Dosage: 4.5 G, QD
     Route: 048
     Dates: start: 20081029
  5. XYREM [Suspect]
     Active Substance: SODIUM OXYBATE
     Dosage: 3.875 G, BID
     Route: 048
  6. XYREM [Suspect]
     Active Substance: SODIUM OXYBATE
     Dosage: 4.5 G, SECOND DOSE
     Route: 048
     Dates: start: 20100518, end: 20100611
  7. XYREM [Suspect]
     Active Substance: SODIUM OXYBATE
     Dosage: 4.25 G, QD
     Route: 048
     Dates: start: 20100713, end: 20100813
  8. XYREM [Suspect]
     Active Substance: SODIUM OXYBATE
     Dosage: 1.25 G, QD
     Route: 048
     Dates: start: 20110918, end: 20110918
  9. XYREM [Suspect]
     Active Substance: SODIUM OXYBATE
     Dosage: 3.75 G FIRST DOSE
     Route: 048
     Dates: start: 20120104, end: 20120104
  10. XYREM [Suspect]
     Active Substance: SODIUM OXYBATE
     Dosage: 2.25 G, QD
     Route: 048
     Dates: start: 20110917
  11. XYREM [Suspect]
     Active Substance: SODIUM OXYBATE
     Dosage: 3.75 G, QD
     Route: 048
     Dates: start: 20110920, end: 20120103
  12. XYREM [Suspect]
     Active Substance: SODIUM OXYBATE
     Dosage: 3.75 G, QD
     Route: 048
     Dates: start: 20120105
  13. XYREM [Suspect]
     Active Substance: SODIUM OXYBATE
     Dosage: 7.75 G, SINGLE DOSE
     Route: 048
     Dates: start: 2009, end: 2009
  14. XYREM [Suspect]
     Active Substance: SODIUM OXYBATE
     Dosage: FIRST DOSE IRREGULAR
     Route: 048
     Dates: start: 20100518, end: 20100611
  15. XYREM [Suspect]
     Active Substance: SODIUM OXYBATE
     Dosage: 4.5 G, QD
     Route: 048
     Dates: start: 20100612, end: 20100712
  16. XYREM [Suspect]
     Active Substance: SODIUM OXYBATE
     Dosage: 4.5 G, QD
     Route: 048
     Dates: start: 20100814, end: 20100826
  17. XYREM [Suspect]
     Active Substance: SODIUM OXYBATE
     Dosage: 3.75 G, QD
     Dates: start: 20190515
  18. MODIODAL [Concomitant]
     Active Substance: MODAFINIL
     Indication: PRODUCT USED FOR UNKNOWN INDICATION
  19. XYREM [Suspect]
     Active Substance: SODIUM OXYBATE
     Dosage: 3.25 G, SECOND DOSE
     Route: 048
     Dates: end: 20090924
  20. MODAFINIL. [Concomitant]
     Active Substance: MODAFINIL
     Indication: NARCOLEPSY
     Dosage: UNKNOWN SINGLE DOSE
     Route: 048
  21. MODAFINIL. [Concomitant]
     Active Substance: MODAFINIL
     Indication: CATAPLEXY
  22. XYREM [Suspect]
     Active Substance: SODIUM OXYBATE
     Dosage: 3.25 G, SECOND DOSE
     Route: 048
     Dates: start: 20091002, end: 20100509
  23. XYREM [Suspect]
     Active Substance: SODIUM OXYBATE
     Dosage: 3.75 G, QD
     Route: 048
     Dates: start: 20110910, end: 20110916
  24. XYREM [Suspect]
     Active Substance: SODIUM OXYBATE
     Dosage: 2.25 G, QD
     Route: 048
     Dates: start: 20190214, end: 2019
  25. XYREM [Suspect]
     Active Substance: SODIUM OXYBATE
     Dosage: 4.5 G, FIRST DOSE
     Route: 048
     Dates: end: 20090924
  26. XYREM [Suspect]
     Active Substance: SODIUM OXYBATE
     Dosage: 3.25 G, QD
     Route: 048
     Dates: start: 20110905, end: 20110909
  27. XYREM [Suspect]
     Active Substance: SODIUM OXYBATE
     Dosage: 2.5 G SECOND DOSE
     Route: 048
     Dates: start: 20120104, end: 20120104
  28. XYREM [Suspect]
     Active Substance: SODIUM OXYBATE
     Dosage: 4.5 G, FIRST DOSE
     Route: 048
     Dates: start: 20091002, end: 20100509
  29. XYREM [Suspect]
     Active Substance: SODIUM OXYBATE
     Dosage: 3.75 G, QD
     Route: 048
     Dates: start: 20100827
  30. XYREM [Suspect]
     Active Substance: SODIUM OXYBATE
     Dosage: 4.5 G, QD
     Route: 048
     Dates: start: 20110116, end: 20110826
  31. XYREM [Suspect]
     Active Substance: SODIUM OXYBATE
     Dosage: 3.75 G,QD
     Route: 048
     Dates: start: 20110827, end: 20110904

REACTIONS (19)
  - Depression [Recovered/Resolved]
  - Vomiting [Recovered/Resolved]
  - Nausea [Recovered/Resolved]
  - Weight decreased [Recovered/Resolved]
  - Inguinal hernia [Recovered/Resolved]
  - Bulimia nervosa [Unknown]
  - Psychomotor hyperactivity [Recovered/Resolved]
  - Disorientation [Recovered/Resolved]
  - Decreased appetite [Recovered/Resolved]
  - Balance disorder [Recovered/Resolved]
  - Disturbance in attention [Recovered/Resolved]
  - Incorrect dose administered [Unknown]
  - Headache [Recovered/Resolved]
  - Insomnia [Recovered/Resolved]
  - Dizziness [Recovered/Resolved]
  - Anxiety [Recovered/Resolved]
  - Enuresis [Unknown]
  - Somnambulism [Unknown]
  - Confusional state [Recovered/Resolved]

NARRATIVE: CASE EVENT DATE: 20080221
